FAERS Safety Report 8004286-6 (Version None)
Quarter: 2011Q4

REPORT INFORMATION
  Report Type: 
  Country: None (occurrence: None)
  Receive Date: 20111223
  Receipt Date: 20111219
  Transmission Date: 20120403
  Serious: No
  Sender: FDA-Public Use
  Company Number: US-BIOGENIDEC-2011BI047795

PATIENT
  Sex: Male

DRUGS (5)
  1. AVONEX [Concomitant]
     Route: 030
  2. AVONEX [Concomitant]
     Indication: MULTIPLE SCLEROSIS
     Route: 030
  3. AVONEX [Concomitant]
     Route: 030
  4. TYSABRI [Suspect]
     Indication: MULTIPLE SCLEROSIS
     Route: 042
     Dates: start: 20090320
  5. TYSABRI [Suspect]
     Route: 042
     Dates: start: 20070426, end: 20081015

REACTIONS (2)
  - URINARY TRACT INFECTION [None]
  - DRUG EFFECT DECREASED [None]
